FAERS Safety Report 7383110-9 (Version None)
Quarter: 2011Q1

REPORT INFORMATION
  Report Type: 
  Country: None (occurrence: None)
  Receive Date: 20110322
  Receipt Date: 20110315
  Transmission Date: 20110831
  Serious: Yes (Hospitalization, Disabling, Other)
  Sender: FDA-Public Use
  Company Number: 2009-198049-NL

PATIENT
  Age: 29 Year
  Sex: Female
  Weight: 74.8435 kg

DRUGS (9)
  1. SUDAFED 12 HOUR [Concomitant]
  2. IMITREX [Concomitant]
  3. ROBITUSSIN [Concomitant]
  4. PULMICORT [Concomitant]
  5. NUVARING [Suspect]
     Indication: CONTRACEPTION
     Dates: start: 20070228, end: 20070701
  6. ADVAIR HFA [Concomitant]
  7. IUD [Suspect]
     Indication: PRODUCT USED FOR UNKNOWN INDICATION
  8. ACETAMINOPHEN [Concomitant]
  9. ALBUTEROL [Concomitant]

REACTIONS (52)
  - ASTHMA [None]
  - VERTIGO POSITIONAL [None]
  - PAIN IN EXTREMITY [None]
  - POLLAKIURIA [None]
  - CONTUSION [None]
  - ANAEMIA [None]
  - TINNITUS [None]
  - HEADACHE [None]
  - WEIGHT INCREASED [None]
  - INSOMNIA [None]
  - THROMBOSIS [None]
  - DIZZINESS [None]
  - DEPRESSION [None]
  - MEMORY IMPAIRMENT [None]
  - UPPER RESPIRATORY TRACT INFECTION [None]
  - HYPERCOAGULATION [None]
  - VOMITING [None]
  - PAPILLOEDEMA [None]
  - ABDOMINAL PAIN [None]
  - STRESS [None]
  - BACK PAIN [None]
  - BACK INJURY [None]
  - VISION BLURRED [None]
  - MIGRAINE [None]
  - EAR PAIN [None]
  - SINUSITIS [None]
  - CULTURE URINE POSITIVE [None]
  - INTRACRANIAL VENOUS SINUS THROMBOSIS [None]
  - RHEUMATOID ARTHRITIS [None]
  - CHOLECYSTITIS [None]
  - DIARRHOEA [None]
  - INTRACRANIAL PRESSURE INCREASED [None]
  - EPISTAXIS [None]
  - HYPOTHYROIDISM [None]
  - CEREBROVASCULAR ACCIDENT [None]
  - BLOOD PRESSURE SYSTOLIC DECREASED [None]
  - CONSTIPATION [None]
  - IRRITABLE BOWEL SYNDROME [None]
  - AFFECTIVE DISORDER [None]
  - AMNESIA [None]
  - JOINT INJURY [None]
  - INTERNATIONAL NORMALISED RATIO FLUCTUATION [None]
  - FALL [None]
  - HEAD INJURY [None]
  - ROSACEA [None]
  - DIPLOPIA [None]
  - HYPERLIPIDAEMIA [None]
  - NAUSEA [None]
  - HYPOKALAEMIA [None]
  - LIMB INJURY [None]
  - BRONCHITIS [None]
  - ENTEROCOCCAL INFECTION [None]
